FAERS Safety Report 10076648 (Version 1)
Quarter: 2014Q2

REPORT INFORMATION
  Report Type: Spontaneous
  Country: US (occurrence: US)
  Receive Date: 20140414
  Receipt Date: 20140414
  Transmission Date: 20141212
  Serious: No
  Sender: FDA-Public Use
  Company Number: US-PFIZER INC-2014101267

PATIENT
  Age: 38 Year
  Sex: Female
  Weight: 77.1 kg

DRUGS (4)
  1. DEPO-SUBQ PROVERA 104 [Suspect]
     Indication: CONTRACEPTION
     Dosage: UNK, EVERY 3 MONTHS
     Route: 058
     Dates: start: 2007
  2. DEPO-SUBQ PROVERA 104 [Suspect]
     Indication: ENDOMETRIOSIS
  3. LORTAB [Concomitant]
  4. ULTRAM [Concomitant]

REACTIONS (1)
  - Fibromyalgia [Unknown]
